FAERS Safety Report 25897558 (Version 2)
Quarter: 2025Q4

REPORT INFORMATION
  Report Type: Spontaneous
  Country: CA (occurrence: CA)
  Receive Date: 20251008
  Receipt Date: 20251016
  Transmission Date: 20260118
  Serious: Yes (Death, Other)
  Sender: CSL BEHRING
  Company Number: CA-BEH-2025216505

PATIENT
  Age: 72 Year
  Sex: Female

DRUGS (1)
  1. HUMAN IMMUNOGLOBULIN G [Suspect]
     Active Substance: HUMAN IMMUNOGLOBULIN G
     Indication: Muscular weakness
     Dosage: UNK
     Route: 042

REACTIONS (5)
  - Cardio-respiratory arrest [Fatal]
  - Drug ineffective [Unknown]
  - Asthenia [Unknown]
  - Muscular weakness [Unknown]
  - Off label use [Unknown]
